FAERS Safety Report 5347245-4 (Version None)
Quarter: 2007Q2

REPORT INFORMATION
  Report Type: 
  Country: None (occurrence: None)
  Receive Date: 20070606
  Receipt Date: 20070524
  Transmission Date: 20071010
  Serious: Yes (Other)
  Sender: FDA-Public Use
  Company Number: PHBS2007JP08764

PATIENT
  Age: 18 Year
  Sex: Male

DRUGS (5)
  1. GLEEVEC [Suspect]
     Indication: ACUTE LYMPHOCYTIC LEUKAEMIA
     Dosage: 600 MG/D
     Route: 048
     Dates: start: 20070428, end: 20070521
  2. DAUNORUBICIN HYDROCHLORIDE [Concomitant]
     Route: 042
     Dates: start: 20070428, end: 20070521
  3. VINCRISTINE SULFATE [Concomitant]
     Route: 042
     Dates: start: 20070428, end: 20070521
  4. CYCLOPHOSPHAMIDE [Concomitant]
     Route: 042
     Dates: start: 20070428, end: 20070521
  5. PREDONINE [Concomitant]
     Route: 048
     Dates: start: 20070428, end: 20070521

REACTIONS (1)
  - PNEUMATOSIS INTESTINALIS [None]
